FAERS Safety Report 17220928 (Version 1)
Quarter: 2019Q4

REPORT INFORMATION
  Report Type: Spontaneous
  Country: US (occurrence: US)
  Receive Date: 20191231
  Receipt Date: 20191231
  Transmission Date: 20200122
  Serious: No
  Sender: FDA-Public Use
  Company Number: US-FOUNDATIONCONSUMERHC-2019-US-015664

PATIENT
  Age: 17 Year
  Sex: Female
  Weight: 49.9 kg

DRUGS (1)
  1. PLAN B ONE-STEP [Suspect]
     Active Substance: LEVONORGESTREL
     Indication: POST COITAL CONTRACEPTION
     Dosage: 1.5
     Route: 048
     Dates: start: 201907, end: 201907

REACTIONS (1)
  - Vaginal haemorrhage [Unknown]

NARRATIVE: CASE EVENT DATE: 20190715
